FAERS Safety Report 6998238-2 (Version None)
Quarter: 2010Q3

REPORT INFORMATION
  Report Type: 
  Country: None (occurrence: None)
  Receive Date: 20100920
  Receipt Date: 20100324
  Transmission Date: 20110219
  Serious: No
  Sender: FDA-Public Use
  Company Number: US-ASTRAZENECA-2007UW20954

PATIENT
  Age: 653 Month
  Sex: Male
  Weight: 73.9 kg

DRUGS (9)
  1. SEROQUEL [Suspect]
     Indication: DEPRESSION
     Dosage: 100 TO 300 MG
     Route: 048
     Dates: start: 20060508, end: 20070723
  2. SEROQUEL [Suspect]
     Indication: SLEEP DISORDER
     Dosage: 100 TO 300 MG
     Route: 048
     Dates: start: 20060508, end: 20070723
  3. XANAX [Concomitant]
     Dates: start: 20060101
  4. PAXIL [Concomitant]
     Dates: start: 20060101
  5. REMERON [Concomitant]
     Dates: start: 20060101
  6. ZOLOFT [Concomitant]
     Dates: start: 20060101
  7. LEXAPRO [Concomitant]
     Dates: start: 20090101
  8. ELAVIL [Concomitant]
     Dates: start: 20090101
  9. AMITRIPTYLINE HCL [Concomitant]
     Dates: start: 20070101

REACTIONS (3)
  - GASTROOESOPHAGEAL REFLUX DISEASE [None]
  - SKIN LACERATION [None]
  - TYPE 2 DIABETES MELLITUS [None]
